FAERS Safety Report 14775557 (Version 1)
Quarter: 2018Q2

REPORT INFORMATION
  Report Type: Spontaneous
  Country: SE (occurrence: SE)
  Receive Date: 20180418
  Receipt Date: 20180418
  Transmission Date: 20180711
  Serious: Yes (Hospitalization)
  Sender: FDA-Public Use
  Company Number: SE-TEVA-2018-SE-882576

PATIENT
  Age: 69 Year
  Sex: Male

DRUGS (2)
  1. REPAGLINIDE TEVA 0.5 MG [Suspect]
     Active Substance: REPAGLINIDE
     Indication: TYPE 2 DIABETES MELLITUS
     Dosage: 6 MILLIGRAM DAILY; TREATMENT TIME IS APPROXIMATELY 4-5 YEARS
     Route: 048
     Dates: start: 2013, end: 201802
  2. REPAGLINIDE TEVA 0.5 MG [Suspect]
     Active Substance: REPAGLINIDE
     Dosage: 6 MILLIGRAM DAILY; 4 X 0.5 MG TABLETS 3 TIMES DAILY
     Route: 048
     Dates: start: 201802, end: 20180410

REACTIONS (5)
  - Chest pain [Recovering/Resolving]
  - Musculoskeletal pain [Recovering/Resolving]
  - Neuralgia [Recovering/Resolving]
  - Abdominal pain upper [Recovering/Resolving]
  - Therapy change [Recovering/Resolving]

NARRATIVE: CASE EVENT DATE: 201802
